FAERS Safety Report 8220415-3 (Version None)
Quarter: 2012Q1

REPORT INFORMATION
  Report Type: 
  Country: None (occurrence: None)
  Receive Date: 20120316
  Receipt Date: 20120301
  Transmission Date: 20120608
  Serious: Yes (Hospitalization)
  Sender: FDA-Public Use
  Company Number: ACO_29544_2012

PATIENT
  Age: 47 Year
  Sex: Female

DRUGS (10)
  1. CYMBALTA [Concomitant]
  2. AMPYRA [Suspect]
     Indication: PRODUCT USED FOR UNKNOWN INDICATION
     Dosage: 10 MG, BID, ORAL
     Route: 048
     Dates: start: 20120206, end: 20120213
  3. COPAXONE [Concomitant]
  4. KLONOPIN [Concomitant]
  5. SUMATRIPTAN [Concomitant]
  6. PROTONIX [Concomitant]
  7. VITAMIN D [Concomitant]
  8. VITAMIN B12 [Concomitant]
  9. NUCYNTA [Concomitant]
  10. NORVASC [Concomitant]

REACTIONS (1)
  - DRUG HYPERSENSITIVITY [None]
